FAERS Safety Report 24338362 (Version 5)
Quarter: 2024Q4

REPORT INFORMATION
  Report Type: Spontaneous
  Country: US (occurrence: US)
  Receive Date: 20240919
  Receipt Date: 20241210
  Transmission Date: 20250115
  Serious: Yes (Hospitalization, Other)
  Sender: SANOFI AVENTIS
  Company Number: US-SA-2024SA267281

PATIENT
  Age: 70 Year
  Sex: Male
  Weight: 104.55 kg

DRUGS (6)
  1. DUPIXENT [Suspect]
     Active Substance: DUPILUMAB
     Indication: Illness
     Dosage: 300 MG, QOW
     Route: 058
     Dates: start: 20240214, end: 20240814
  2. DUPIXENT [Suspect]
     Active Substance: DUPILUMAB
     Indication: Pneumoconiosis
     Dosage: UNK
     Dates: start: 2024
  3. DUPIXENT [Suspect]
     Active Substance: DUPILUMAB
     Indication: Chronic obstructive pulmonary disease
  4. DUPIXENT [Suspect]
     Active Substance: DUPILUMAB
     Indication: Asthma
  5. CELECOXIB [Concomitant]
     Active Substance: CELECOXIB
     Dosage: UNK
  6. PREDNISONE [Concomitant]
     Active Substance: PREDNISONE
     Dosage: 10 MG, QD

REACTIONS (8)
  - SARS-CoV-2 test positive [Recovered/Resolved]
  - Pneumonia [Unknown]
  - Sepsis [Recovering/Resolving]
  - Dyspnoea [Unknown]
  - Pneumoconiosis [Unknown]
  - Condition aggravated [Unknown]
  - COVID-19 [Unknown]
  - Product use in unapproved indication [Unknown]

NARRATIVE: CASE EVENT DATE: 20240101
